FAERS Safety Report 4418103-4 (Version None)
Quarter: 2004Q3

REPORT INFORMATION
  Report Type: 
  Country: None (occurrence: None)
  Receive Date: 20040806
  Receipt Date: 20040806
  Transmission Date: 20050211
  Serious: Yes (Life-Threatening, Hospitalization)
  Sender: FDA-Public Use
  Company Number: None

PATIENT
  Age: 49 Year
  Sex: Female
  Weight: 90.7194 kg

DRUGS (1)
  1. OVCON-35 [Suspect]
     Indication: MENORRHAGIA
     Dosage: 1 A DAY FOR 5 WKS THEN DOUBLE , TRIPLE (SEE DESCRIPTION)

REACTIONS (5)
  - ANAEMIA [None]
  - CONDITION AGGRAVATED [None]
  - MENORRHAGIA [None]
  - PULMONARY EMBOLISM [None]
  - UTERINE LEIOMYOMA [None]
